FAERS Safety Report 10223954 (Version 2)
Quarter: 2014Q2

REPORT INFORMATION
  Report Type: Spontaneous
  Country: US (occurrence: US)
  Receive Date: 20140609
  Receipt Date: 20140609
  Transmission Date: 20141212
  Serious: No
  Sender: FDA-Public Use
  Company Number: US-DRREDDYS-USA/USA/14/0039127

PATIENT
  Age: 59 Year
  Sex: Male
  Weight: 81.64 kg

DRUGS (2)
  1. MUCINEX ALLERGY (FEXOFENADINE) [Suspect]
     Indication: SNEEZING
     Route: 048
     Dates: start: 20140320
  2. MUCINEX ALLERGY (FEXOFENADINE) [Suspect]
     Indication: RHINORRHOEA

REACTIONS (2)
  - Abdominal pain [Recovered/Resolved]
  - Extra dose administered [Unknown]
